FAERS Safety Report 5219051-2 (Version None)
Quarter: 2007Q1

REPORT INFORMATION
  Report Type: 
  Country: None (occurrence: None)
  Receive Date: 20070124
  Receipt Date: 20070124
  Transmission Date: 20070707
  Serious: Yes (Hospitalization)
  Sender: FDA-Public Use
  Company Number: None

PATIENT
  Age: 78 Year
  Sex: Male
  Weight: 88 kg

DRUGS (17)
  1. GLEEVEC [Suspect]
     Indication: RENAL CELL CARCINOMA STAGE UNSPECIFIED
     Dosage: 600MG PER DAY PO
     Route: 048
     Dates: start: 20061208, end: 20061226
  2. RAD001 2.5MG NOVARTIS [Suspect]
     Indication: RENAL CELL CARCINOMA STAGE UNSPECIFIED
     Dosage: 2.5 MG PER DAY PO
     Route: 048
     Dates: start: 20061208, end: 20061226
  3. METOPROLOL TARTRATE [Concomitant]
  4. ASPIRIN [Concomitant]
  5. SIMVASTATIN [Concomitant]
  6. EZETIMIBE [Concomitant]
  7. AMLODIPINE [Concomitant]
  8. PLAVIX [Concomitant]
  9. NITROGLYCERIN SUBLINGUAL [Concomitant]
  10. TYLENOL [Concomitant]
  11. LEVOTHYROXINE SODIUM [Concomitant]
  12. TAMSULOSIN HCL [Concomitant]
  13. BISACODYL [Concomitant]
  14. SENNA [Concomitant]
  15. DOCUSATE [Concomitant]
  16. GUAIFENESIN [Concomitant]
  17. LOPERAMIDE HCL [Concomitant]

REACTIONS (8)
  - ANAEMIA [None]
  - CORONARY ARTERIAL STENT INSERTION [None]
  - ERYTHEMA [None]
  - LIMB INJURY [None]
  - OSTEOARTHRITIS [None]
  - PERITONEAL HAEMORRHAGE [None]
  - RENAL FAILURE [None]
  - SWELLING [None]
